FAERS Safety Report 10947368 (Version 5)
Quarter: 2015Q3

REPORT INFORMATION
  Report Type: Report from Study
  Country: US (occurrence: US)
  Receive Date: 20150323
  Receipt Date: 20150911
  Transmission Date: 20151125
  Serious: Yes (Death, Life-Threatening, Hospitalization, Other)
  Sender: FDA-Public Use
  Company Number: US-ALEXION PHARMACEUTICALS INC-A201500953

PATIENT

DRUGS (1)
  1. SOLIRIS [Suspect]
     Active Substance: ECULIZUMAB
     Indication: PAROXYSMAL NOCTURNAL HAEMOGLOBINURIA
     Dosage: UNK
     Route: 042

REACTIONS (7)
  - Malaise [Unknown]
  - Loss of consciousness [Not Recovered/Not Resolved]
  - Death [Fatal]
  - Sepsis [Unknown]
  - Bone marrow failure [Not Recovered/Not Resolved]
  - Unevaluable event [Unknown]
  - Hospice care [Unknown]

NARRATIVE: CASE EVENT DATE: 20150608
